FAERS Safety Report 7805338-3 (Version None)
Quarter: 2011Q4

REPORT INFORMATION
  Report Type: 
  Country: None (occurrence: None)
  Receive Date: 20111010
  Receipt Date: 20111007
  Transmission Date: 20120403
  Serious: Yes (Hospitalization, Other)
  Sender: FDA-Public Use
  Company Number: US-PURDUE-USA-2011-0075858

PATIENT
  Age: 46 Year
  Sex: Female

DRUGS (7)
  1. SOMA [Concomitant]
     Indication: MUSCULOSKELETAL DISCOMFORT
     Dosage: 350 MG, PRN
  2. AMBIEN [Concomitant]
     Indication: INSOMNIA
  3. KLONOPIN [Concomitant]
     Indication: CONVULSION
  4. RYZOLT [Suspect]
     Indication: PAIN
     Dosage: 300 MG, UNK
  5. LYRICA [Concomitant]
     Indication: PRODUCT USED FOR UNKNOWN INDICATION
     Dosage: 375 MG, DAILY
  6. CYMBALTA [Concomitant]
     Indication: PRODUCT USED FOR UNKNOWN INDICATION
     Dosage: 120 MG, DAILY
  7. XANAX [Concomitant]
     Indication: ANXIETY

REACTIONS (3)
  - SPINAL FUSION SURGERY [None]
  - STAPHYLOCOCCAL INFECTION [None]
  - BLOOD TEST ABNORMAL [None]
